FAERS Safety Report 12625752 (Version 2)
Quarter: 2016Q4

REPORT INFORMATION
  Report Type: Report from Study
  Country: IT (occurrence: IT)
  Receive Date: 20160805
  Receipt Date: 20161107
  Transmission Date: 20170207
  Serious: Yes (Hospitalization)
  Sender: FDA-Public Use
  Company Number: IT-PFIZER INC-2016371526

PATIENT
  Age: 68 Year
  Sex: Female
  Weight: 60 kg

DRUGS (3)
  1. VECTIBIX [Suspect]
     Active Substance: PANITUMUMAB
     Dosage: UNK
  2. OXALIPLATIN. [Suspect]
     Active Substance: OXALIPLATIN
     Indication: COLON CANCER
     Dosage: 130 MG, CYCLIC
     Route: 042
     Dates: start: 20160331, end: 20160517
  3. FLUOROURACIL. [Suspect]
     Active Substance: FLUOROURACIL
     Dosage: 1800 MG, CYCLIC
     Route: 042
     Dates: start: 20160331, end: 20160517

REACTIONS (2)
  - Cardiotoxicity [Recovered/Resolved]
  - Intestinal ischaemia [Unknown]

NARRATIVE: CASE EVENT DATE: 20160526
